FAERS Safety Report 20570200 (Version 1)
Quarter: 2022Q1

REPORT INFORMATION
  Report Type: Report from Study
  Country: US (occurrence: US)
  Receive Date: 20220309
  Receipt Date: 20220309
  Transmission Date: 20220423
  Serious: Yes (Other)
  Sender: FDA-Public Use
  Company Number: US-ABBVIE-22K-163-4305091-00

PATIENT
  Sex: Female

DRUGS (4)
  1. HUMIRA [Suspect]
     Active Substance: ADALIMUMAB
     Indication: Colitis ulcerative
     Dosage: CF
     Route: 058
  2. MODERNA COVID-19 VACCINE [Concomitant]
     Active Substance: ELASOMERAN
     Indication: COVID-19 immunisation
     Dosage: COVID-19  VACCINE FIRST DOSE
     Route: 030
     Dates: start: 20210222, end: 20210222
  3. MODERNA COVID-19 VACCINE [Concomitant]
     Active Substance: ELASOMERAN
     Dosage: COVID-19  VACCINE SECOND DOSE
     Route: 030
     Dates: start: 20210309, end: 20210309
  4. MODERNA COVID-19 VACCINE [Concomitant]
     Active Substance: ELASOMERAN
     Dosage: COVID-19  VACCINE 3RD DOSE
     Route: 030
     Dates: start: 20210919, end: 20210919

REACTIONS (1)
  - Ligament sprain [Recovering/Resolving]

NARRATIVE: CASE EVENT DATE: 20220101
